FAERS Safety Report 23597432 (Version 3)
Quarter: 2024Q1

REPORT INFORMATION
  Report Type: Spontaneous
  Country: US (occurrence: US)
  Receive Date: 20240305
  Receipt Date: 20240318
  Transmission Date: 20240410
  Serious: No
  Sender: FDA-Public Use
  Company Number: US-KYOWAKIRIN-2024KK003789

PATIENT

DRUGS (3)
  1. POTELIGEO [Suspect]
     Active Substance: MOGAMULIZUMAB-KPKC
     Indication: Cutaneous T-cell lymphoma
     Dosage: UNK, 1X/2 WEEKS
     Route: 042
     Dates: start: 2023
  2. POTELIGEO [Suspect]
     Active Substance: MOGAMULIZUMAB-KPKC
     Dosage: UNK, 1X/2 WEEKS (EVERY 2 WEEKS)
     Route: 042
     Dates: start: 20240222
  3. POTELIGEO [Suspect]
     Active Substance: MOGAMULIZUMAB-KPKC
     Dosage: UNK, 1X/2 WEEKS (EVERY 2 WEEKS)
     Route: 042
     Dates: start: 20240308

REACTIONS (4)
  - Sinus congestion [Not Recovered/Not Resolved]
  - Ocular hyperaemia [Recovered/Resolved]
  - Rash [Unknown]
  - Rash [Unknown]

NARRATIVE: CASE EVENT DATE: 20230901
